FAERS Safety Report 16646428 (Version 22)
Quarter: 2024Q4

REPORT INFORMATION
  Report Type: Spontaneous
  Country: US (occurrence: US)
  Receive Date: 20190730
  Receipt Date: 20241115
  Transmission Date: 20250114
  Serious: Yes (Other)
  Sender: PFIZER
  Company Number: US-PFIZER INC-2016565892

PATIENT
  Age: 15 Year
  Sex: Male
  Weight: 43 kg

DRUGS (10)
  1. BENEFIX [Suspect]
     Active Substance: COAGULATION FACTOR IX RECOMBINANT HUMAN\ISOPROPYL ALCOHOL
     Indication: Factor IX deficiency
     Dosage: 4300 UNITS (+/-5%)= 100U/KG= 100% DOSE OF BLEEDS ON DEMAND
  2. BENEFIX [Suspect]
     Active Substance: COAGULATION FACTOR IX RECOMBINANT HUMAN\ISOPROPYL ALCOHOL
     Dosage: DOSING AT 64 KG. PLEASE INFUSE BENEFIX 6400 UNITS (+5%) = 100 U/KG ON DEMAND FOR BLEEDS
  3. BENEFIX [Suspect]
     Active Substance: COAGULATION FACTOR IX RECOMBINANT HUMAN\ISOPROPYL ALCOHOL
     Dosage: DOSING WEIGHT IS 62 KGS. INFUSE BENEFIX 6200 UNITS (+5%) = 100 UNITS/KG, EVERY OTHER
  4. BENEFIX [Suspect]
     Active Substance: COAGULATION FACTOR IX RECOMBINANT HUMAN\ISOPROPYL ALCOHOL
     Dosage: DOSING AT 64 KG. INFUSE 6400 UNITS (+5%) = 100 U/KG OD UNTIL OOZING FROM INJURY STOPS FOR 24 HRS
  5. BENEFIX [Suspect]
     Active Substance: COAGULATION FACTOR IX RECOMBINANT HUMAN\ISOPROPYL ALCOHOL
     Dosage: INFUSE BENEFIX 6600 IU (+/- 10%) = 100 IU/KG DAILY X 1 ON-DEMAND
  6. BENEFIX [Suspect]
     Active Substance: COAGULATION FACTOR IX RECOMBINANT HUMAN\ISOPROPYL ALCOHOL
     Dosage: 6400 UNITS (+/-10%) = 100 UNITS/KG DAILY ON DEMAND
  7. BENEFIX [Suspect]
     Active Substance: COAGULATION FACTOR IX RECOMBINANT HUMAN\ISOPROPYL ALCOHOL
     Dosage: 6600 IU (+/- 10% ) = 100IU/KG
  8. BENEFIX [Suspect]
     Active Substance: COAGULATION FACTOR IX RECOMBINANT HUMAN\ISOPROPYL ALCOHOL
     Dosage: INFUSE BENEFIX 6800 IU (+/-10% ) = 100 IU/KG DAILY X 1 ON-DEMAND FOR A BLEED
  9. BENEFIX [Suspect]
     Active Substance: COAGULATION FACTOR IX RECOMBINANT HUMAN\ISOPROPYL ALCOHOL
     Dosage: 7000 IU, +/-10%
  10. BENEFIX [Suspect]
     Active Substance: COAGULATION FACTOR IX RECOMBINANT HUMAN\ISOPROPYL ALCOHOL
     Dosage: INFUSE BENEFIX 7100IU (+/-10% ) = 100 IU/KG DAILY X 1 ON-DEMAND

REACTIONS (4)
  - Haemarthrosis [Not Recovered/Not Resolved]
  - Haemorrhage [Not Recovered/Not Resolved]
  - Ear haemorrhage [Unknown]
  - Pain in extremity [Unknown]
